FAERS Safety Report 9106447 (Version 1)
Quarter: 2013Q1

REPORT INFORMATION
  Report Type: Report from Study
  Country: US (occurrence: US)
  Receive Date: 20130221
  Receipt Date: 20130221
  Transmission Date: 20140127
  Serious: Yes (Other)
  Sender: FDA-Public Use
  Company Number: US-ROCHE-1186476

PATIENT
  Sex: Female

DRUGS (4)
  1. AVASTIN [Suspect]
     Indication: PRODUCT USED FOR UNKNOWN INDICATION
     Route: 050
     Dates: start: 20080731, end: 20090120
  2. LUCENTIS [Suspect]
     Indication: PRODUCT USED FOR UNKNOWN INDICATION
     Route: 065
  3. FOSAMAX [Concomitant]
     Indication: OSTEOPOROSIS
  4. VAGIFEM [Concomitant]
     Indication: ATROPHIC VULVOVAGINITIS

REACTIONS (2)
  - Drug hypersensitivity [Unknown]
  - Blood pressure increased [Recovered/Resolved]
